FAERS Safety Report 7681533-1 (Version None)
Quarter: 2011Q3

REPORT INFORMATION
  Report Type: 
  Country: None (occurrence: None)
  Receive Date: 20110812
  Receipt Date: 20110809
  Transmission Date: 20111222
  Serious: Yes (Other)
  Sender: FDA-Public Use
  Company Number: PHEH2011US01109

PATIENT
  Age: 80 Year
  Sex: Female

DRUGS (4)
  1. CRESTOR [Concomitant]
  2. METOPROLOL TARTRATE [Concomitant]
  3. EXFORGE [Suspect]
     Dosage: 1 DF (160/5 MG), DAILY
  4. PLAVIX [Concomitant]

REACTIONS (2)
  - WRIST FRACTURE [None]
  - FALL [None]
